FAERS Safety Report 22256517 (Version 1)
Quarter: 2023Q2

REPORT INFORMATION
  Report Type: Spontaneous
  Country: US (occurrence: US)
  Receive Date: 20230426
  Receipt Date: 20230426
  Transmission Date: 20230722
  Serious: No
  Sender: FDA-Public Use
  Company Number: US-BAUSCHBL-2023BNL003437

PATIENT
  Age: 60 Year
  Sex: Female
  Weight: 47.670 kg

DRUGS (2)
  1. LUMIFY [Suspect]
     Active Substance: BRIMONIDINE TARTRATE
     Indication: Ocular hyperaemia
     Dosage: APPROXIMATELY 1 YEAR AGO,
     Route: 047
     Dates: start: 2022, end: 202303
  2. LUMIFY [Suspect]
     Active Substance: BRIMONIDINE TARTRATE

REACTIONS (3)
  - Instillation site dryness [Recovering/Resolving]
  - Instillation site foreign body sensation [Recovered/Resolved]
  - Photopsia [Recovering/Resolving]

NARRATIVE: CASE EVENT DATE: 20220101
